FAERS Safety Report 19867649 (Version 1)
Quarter: 2021Q3

REPORT INFORMATION
  Report Type: Spontaneous
  Country: IT (occurrence: IT)
  Receive Date: 20210921
  Receipt Date: 20210921
  Transmission Date: 20211014
  Serious: Yes (Hospitalization)
  Sender: FDA-Public Use
  Company Number: IT-ELI_LILLY_AND_COMPANY-IT202109004725

PATIENT
  Age: 56 Year
  Sex: Male

DRUGS (1)
  1. HUMALOG [Suspect]
     Active Substance: INSULIN LISPRO
     Indication: INTENTIONAL OVERDOSE
     Dosage: 70 INTERNATIONAL UNIT, OTHER (TOTAL)
     Route: 058
     Dates: start: 20210626, end: 20210626

REACTIONS (4)
  - Agitation [Recovering/Resolving]
  - Suicide attempt [Recovering/Resolving]
  - Intentional overdose [Recovering/Resolving]
  - Hypoglycaemia [Recovering/Resolving]

NARRATIVE: CASE EVENT DATE: 20210626
